FAERS Safety Report 5964531-5 (Version None)
Quarter: 2008Q4

REPORT INFORMATION
  Report Type: 
  Country: None (occurrence: None)
  Receive Date: 20081122
  Receipt Date: 20081122
  Transmission Date: 20090506
  Serious: No
  Sender: FDA-Public Use
  Company Number: None

PATIENT
  Sex: Female
  Weight: 63.05 kg

DRUGS (1)
  1. CIPROFLOXACIN [Suspect]
     Indication: SINUSITIS
     Dosage: 1 TABLET 2X DAY
     Dates: end: 20080922

REACTIONS (1)
  - BURNING SENSATION [None]
